FAERS Safety Report 8088711-0 (Version None)
Quarter: 2012Q1

REPORT INFORMATION
  Report Type: 
  Country: None (occurrence: None)
  Receive Date: 20120128
  Receipt Date: 20110605
  Transmission Date: 20120608
  Serious: No
  Sender: FDA-Public Use
  Company Number: US-ABBOTT-11P-163-0730740-00

PATIENT
  Sex: Female
  Weight: 157.08 kg

DRUGS (1)
  1. HUMIRA [Suspect]
     Indication: RHEUMATOID ARTHRITIS
     Dates: start: 20110603, end: 20110603

REACTIONS (6)
  - ILL-DEFINED DISORDER [None]
  - SENSATION OF HEAVINESS [None]
  - IMPAIRED WORK ABILITY [None]
  - ABNORMAL DREAMS [None]
  - ASTHENIA [None]
  - FATIGUE [None]
